FAERS Safety Report 8571214-4 (Version None)
Quarter: 2012Q3

REPORT INFORMATION
  Report Type: 
  Country: None (occurrence: None)
  Receive Date: 20120730
  Receipt Date: 20120730
  Transmission Date: 20120928
  Serious: No
  Sender: FDA-Public Use
  Company Number: None

PATIENT
  Sex: Male
  Weight: 15.6 kg

DRUGS (5)
  1. PEG-L-ASPARAGINASE (PEGASPARGASE, ONCOSPAR) [Suspect]
     Dosage: 1597.5 MG
     Dates: end: 20120716
  2. VINCRISTINE SULFATE [Suspect]
     Dosage: 2.85 MG
     Dates: end: 20120726
  3. DEXAMETHASONE [Suspect]
     Dosage: 42 MG
     Dates: end: 20120725
  4. METHOTREXATE [Suspect]
     Dosage: 24 MG
     Dates: end: 20120724
  5. DAUNORUBICIN HCL [Suspect]
     Dosage: 47.25 MG
     Dates: end: 20120726

REACTIONS (2)
  - PYREXIA [None]
  - NEUTROPENIA [None]
